FAERS Safety Report 11129466 (Version 1)
Quarter: 2015Q2

REPORT INFORMATION
  Report Type: Spontaneous
  Country: US (occurrence: US)
  Receive Date: 20150521
  Receipt Date: 20150521
  Transmission Date: 20150821
  Serious: Yes (Other)
  Sender: FDA-Public Use
  Company Number: US-ASTRAZENECA-2013SE64980

PATIENT
  Age: 22799 Day
  Sex: Male

DRUGS (15)
  1. FLONASE [Concomitant]
     Active Substance: FLUTICASONE PROPIONATE
  2. IPRATROPIUM [Concomitant]
     Active Substance: IPRATROPIUM
     Dosage: UNK UNK, QID
     Route: 045
  3. TRILIPIX [Concomitant]
     Active Substance: FENOFIBRIC ACID
  4. GLUCOPHAGE [Concomitant]
     Active Substance: METFORMIN HYDROCHLORIDE
  5. BYETTA [Suspect]
     Active Substance: EXENATIDE
     Indication: TYPE 2 DIABETES MELLITUS
     Route: 065
  6. PANTOPRAZOLE/PANTOPRAZOLE [Concomitant]
  7. BYETTA [Suspect]
     Active Substance: EXENATIDE
     Indication: TYPE 2 DIABETES MELLITUS
     Dosage: 5 MCG/0.02 ML
     Route: 065
     Dates: start: 20060512, end: 200610
  8. BYETTA [Suspect]
     Active Substance: EXENATIDE
     Indication: TYPE 2 DIABETES MELLITUS
     Dosage: 10 MCG/DOSE
     Route: 065
     Dates: start: 20060719
  9. FISH OIL [Concomitant]
     Active Substance: FISH OIL
  10. CIALIS [Concomitant]
     Active Substance: TADALAFIL
  11. VITAMIN D3 [Concomitant]
     Active Substance: CHOLECALCIFEROL
  12. PRANDIN [Concomitant]
     Active Substance: REPAGLINIDE
  13. ASPIRIN. [Concomitant]
     Active Substance: ASPIRIN
  14. CARAFATE/SUCRALFATE [Concomitant]
  15. SYNTHROID [Concomitant]
     Active Substance: LEVOTHYROXINE SODIUM

REACTIONS (3)
  - Thyroid cancer [Unknown]
  - Mediastinal mass [Unknown]
  - Diarrhoea [Unknown]

NARRATIVE: CASE EVENT DATE: 20090521
